FAERS Safety Report 5263575-9 (Version None)
Quarter: 2007Q1

REPORT INFORMATION
  Report Type: 
  Country: None (occurrence: None)
  Receive Date: 20061213
  Receipt Date: 20030721
  Transmission Date: 20070707
  Serious: Yes (Hospitalization)
  Sender: FDA-Public Use
  Company Number: 2003UW09043

PATIENT
  Age: 77 Year
  Sex: Female
  Weight: 50.8029 kg

DRUGS (4)
  1. IRESSA [Suspect]
     Indication: NON-SMALL CELL LUNG CANCER
     Dosage: 250 MG PO
     Route: 048
     Dates: start: 20030708, end: 20030717
  2. ZOCOR [Concomitant]
  3. ZANTAC [Concomitant]
  4. LOPRESSOR [Concomitant]

REACTIONS (1)
  - DIARRHOEA [None]
